FAERS Safety Report 18825675 (Version 1)
Quarter: 2021Q1

REPORT INFORMATION
  Report Type: Spontaneous
  Country: US (occurrence: US)
  Receive Date: 20210202
  Receipt Date: 20210202
  Transmission Date: 20210419
  Serious: No
  Sender: FDA-Public Use
  Company Number: US-PFIZER INC-2021008623

PATIENT
  Age: 55 Year
  Sex: Female
  Weight: 108 kg

DRUGS (2)
  1. SUTENT [Suspect]
     Active Substance: SUNITINIB MALATE
     Dosage: 50 MG, CYCLIC (DAILY FOR 4 WEEKS THEN 2 WEEK OFF)
     Dates: start: 20201215, end: 20201228
  2. SUTENT [Suspect]
     Active Substance: SUNITINIB MALATE
     Dosage: 5 MG, CYCLIC (DAILY FOR 4 WEEKS THEN 2 WEEK OFF)
     Dates: start: 20210111

REACTIONS (6)
  - Feeling abnormal [Unknown]
  - Dysgeusia [Unknown]
  - Oral discomfort [Unknown]
  - Nausea [Unknown]
  - Dizziness [Unknown]
  - Diarrhoea [Unknown]
